FAERS Safety Report 18330990 (Version 1)
Quarter: 2020Q3

REPORT INFORMATION
  Report Type: Spontaneous
  Country: GR (occurrence: GR)
  Receive Date: 20200930
  Receipt Date: 20200930
  Transmission Date: 20201103
  Serious: Yes (Life-Threatening, Hospitalization)
  Sender: FDA-Public Use
  Company Number: NVSC2020GR263756

PATIENT
  Age: 59 Year
  Sex: Male
  Weight: 70 kg

DRUGS (6)
  1. ERBITUX [Suspect]
     Active Substance: CETUXIMAB
     Indication: COLON CANCER METASTATIC
     Dosage: 900 MG, BIW
     Route: 042
     Dates: start: 20180103
  2. FOLINIC ACID [Suspect]
     Active Substance: LEUCOVORIN
     Indication: COLON CANCER METASTATIC
     Dosage: UNK
     Route: 065
     Dates: start: 20171124, end: 20180516
  3. OXALIPLATIN. [Suspect]
     Active Substance: OXALIPLATIN
     Indication: COLON CANCER METASTATIC
     Dosage: UNK
     Route: 065
     Dates: start: 20171124, end: 20180516
  4. FLUOROURACIL. [Suspect]
     Active Substance: FLUOROURACIL
     Indication: COLON CANCER METASTATIC
     Dosage: UNK
     Route: 065
     Dates: start: 20171124, end: 20180516
  5. INNOHEP [Concomitant]
     Active Substance: TINZAPARIN SODIUM
     Indication: VENA CAVA THROMBOSIS
     Dosage: 14000 UNK
     Route: 058
     Dates: start: 201711, end: 20180530
  6. INNOHEP [Concomitant]
     Active Substance: TINZAPARIN SODIUM
     Route: 042

REACTIONS (2)
  - Off label use [Unknown]
  - Embolism [Recovered/Resolved]

NARRATIVE: CASE EVENT DATE: 20180531
